FAERS Safety Report 6657131-5 (Version None)
Quarter: 2010Q1

REPORT INFORMATION
  Report Type: 
  Country: None (occurrence: None)
  Receive Date: 20100330
  Receipt Date: 20100326
  Transmission Date: 20100710
  Serious: Yes (Death, Hospitalization)
  Sender: FDA-Public Use
  Company Number: CN-ELI_LILLY_AND_COMPANY-CN201001002590

PATIENT
  Age: 68 Year
  Sex: Male
  Weight: 65 kg

DRUGS (14)
  1. PRASUGREL HYDROCHLORIDE [Suspect]
     Indication: ACUTE MYOCARDIAL INFARCTION
     Dosage: 30 MG, LOADING DOSE
  2. PRASUGREL HYDROCHLORIDE [Suspect]
     Dosage: 7.5 MG, MAINTENANCE DOSE
     Route: 048
     Dates: start: 20100110, end: 20100111
  3. PRASUGREL HYDROCHLORIDE [Suspect]
     Dosage: 7.5 MG, MAINTENANCE DOSE
     Route: 048
     Dates: start: 20100112, end: 20100113
  4. ASPIRIN [Concomitant]
     Dates: start: 20100110, end: 20100111
  5. ASPIRIN [Concomitant]
     Dates: start: 20100101
  6. OMEPRAZOLE SODIUM [Concomitant]
     Dates: start: 20100110, end: 20100111
  7. HEPARIN SODIUM [Concomitant]
     Dates: start: 20100111, end: 20100112
  8. FUROSEMIDE [Concomitant]
     Dates: start: 20100112
  9. MANNITOL [Concomitant]
  10. LIPITOR [Concomitant]
     Dosage: UNK, UNK
  11. LIPITOR [Concomitant]
     Dates: start: 20100101
  12. ATROPINE [Concomitant]
  13. ADRENALINE [Concomitant]
  14. PERINDOPRIL [Concomitant]

REACTIONS (2)
  - CEREBRAL ARTERY EMBOLISM [None]
  - UPPER GASTROINTESTINAL HAEMORRHAGE [None]
